FAERS Safety Report 5517296-5 (Version None)
Quarter: 2007Q4

REPORT INFORMATION
  Report Type: 
  Country: None (occurrence: None)
  Receive Date: 20071114
  Receipt Date: 20071008
  Transmission Date: 20080405
  Serious: No
  Sender: FDA-Public Use
  Company Number: A0686231A

PATIENT
  Age: 61 Year
  Sex: Female

DRUGS (2)
  1. COMMIT [Suspect]
     Dates: start: 20071004, end: 20071004
  2. NICODERM CQ [Suspect]

REACTIONS (4)
  - ABNORMAL DREAMS [None]
  - FATIGUE [None]
  - HEART RATE INCREASED [None]
  - RESTLESSNESS [None]
